FAERS Safety Report 24093738 (Version 1)
Quarter: 2024Q3

REPORT INFORMATION
  Report Type: Report from Study
  Country: CA (occurrence: CA)
  Receive Date: 20240715
  Receipt Date: 20240715
  Transmission Date: 20241016
  Serious: Yes (Hospitalization)
  Sender: ABBVIE
  Company Number: CA-ABBVIE-5837067

PATIENT
  Age: 65 Year
  Sex: Female

DRUGS (1)
  1. SKYRIZI [Suspect]
     Active Substance: RISANKIZUMAB-RZAA
     Indication: Psoriasis
     Route: 058
     Dates: start: 20230309, end: 20240310

REACTIONS (4)
  - Loss of consciousness [Unknown]
  - Respiratory disorder [Not Recovered/Not Resolved]
  - Oxygen saturation decreased [Unknown]
  - Carbon dioxide abnormal [Unknown]

NARRATIVE: CASE EVENT DATE: 20230515
